FAERS Safety Report 18089087 (Version 2)
Quarter: 2020Q4

REPORT INFORMATION
  Report Type: Spontaneous
  Country: JP (occurrence: JP)
  Receive Date: 20200729
  Receipt Date: 20201002
  Transmission Date: 20210113
  Serious: Yes (Life-Threatening, Hospitalization, Other)
  Sender: FDA-Public Use
  Company Number: JP-TAKEDA-2020TJP015527

PATIENT
  Age: 64 Year
  Sex: Female

DRUGS (20)
  1. LANSOPRAZOLE. [Suspect]
     Active Substance: LANSOPRAZOLE
     Indication: GASTROOESOPHAGEAL REFLUX DISEASE
     Dosage: UNK
     Route: 065
  2. OBINUTUZUMAB. [Suspect]
     Active Substance: OBINUTUZUMAB
     Indication: LYMPHADENOPATHY
     Dosage: UNK, CYCLIC (AFTER ONE CYCLE OF SUBSEQUENT OBINUTUZUMAB MAINTENANCE THERAPY)
     Route: 065
  3. CYTARABINE. [Suspect]
     Active Substance: CYTARABINE
     Indication: B-CELL LYMPHOMA
     Dosage: UNK, CYCLIC (HIGH-DOSE)
     Route: 065
  4. CARBOPLATIN. [Suspect]
     Active Substance: CARBOPLATIN
     Indication: B-CELL LYMPHOMA
     Dosage: UNK UNK, CYCLIC
     Route: 065
  5. RITUXAN [Suspect]
     Active Substance: RITUXIMAB
     Indication: B-CELL LYMPHOMA
     Dosage: UNK, CYCLIC (B-R THERAPY)
     Route: 065
  6. RITUXAN [Suspect]
     Active Substance: RITUXIMAB
     Dosage: UNK, CYCLIC (R-ESHAP THERAPY)
     Route: 065
  7. CYCLOPHOSPHAMIDE. [Suspect]
     Active Substance: CYCLOPHOSPHAMIDE
     Indication: B-CELL LYMPHOMA
     Dosage: UNK, CYCLIC (RECHOP THERAPY)
     Route: 065
  8. VINCRISTINE [Suspect]
     Active Substance: VINCRISTINE
     Indication: B-CELL LYMPHOMA
     Dosage: UNK, CYCLIC (RECHOP THERAPY)
     Route: 065
  9. CYCLOPHOSPHAMIDE. [Suspect]
     Active Substance: CYCLOPHOSPHAMIDE
     Indication: LYMPHADENOPATHY
     Dosage: UNK, CYCLIC (SALVAGE IMMUNOCHEMOTHERAPY)
     Route: 065
  10. SOL MELCORT TAISHO [Suspect]
     Active Substance: METHYLPREDNISOLONE SODIUM SUCCINATE
     Indication: B-CELL LYMPHOMA
     Dosage: UNK, CYCLIC
     Route: 065
  11. PREDONINE [Suspect]
     Active Substance: PREDNISOLONE
     Indication: B-CELL LYMPHOMA
     Dosage: UNK, CYCLIC (RECHOP THERAPY)
     Route: 065
  12. PREDONINE [Suspect]
     Active Substance: PREDNISOLONE
     Indication: LYMPHADENOPATHY
     Dosage: UNK, CYCLIC (SALVAGE IMMUNOCHEMOTHERAPY
     Route: 065
  13. VINCRISTINE [Suspect]
     Active Substance: VINCRISTINE
     Indication: LYMPHADENOPATHY
     Dosage: UNK, CYCLIC (SALVAGE IMMUNOCHEMOTHERAPY)
     Route: 065
  14. BENDAMUSTINE [Suspect]
     Active Substance: BENDAMUSTINE
     Indication: B-CELL LYMPHOMA
     Dosage: UNK UNK, CYCLIC
     Route: 065
  15. VALSARTAN. [Concomitant]
     Active Substance: VALSARTAN
     Indication: HYPERTENSION
     Dosage: UNK
  16. RITUXAN [Suspect]
     Active Substance: RITUXIMAB
     Dosage: UNK, CYCLIC (RECHOP THERAPY)
     Route: 065
  17. ETOPOSIDE. [Suspect]
     Active Substance: ETOPOSIDE
     Indication: B-CELL LYMPHOMA
     Dosage: UNK, CYCLIC
     Route: 065
  18. PREDONINE [Suspect]
     Active Substance: PREDNISOLONE
     Indication: POLYMYOSITIS
     Dosage: 5 MILLIGRAM, QD5 MG, 1X/DAY
     Route: 065
  19. ADRIACIN [Suspect]
     Active Substance: DOXORUBICIN HYDROCHLORIDE
     Indication: B-CELL LYMPHOMA
     Dosage: UNK, CYCLIC
     Route: 065
  20. OBINUTUZUMAB. [Suspect]
     Active Substance: OBINUTUZUMAB
     Dosage: UNK, CYCLIC (SALVAGE IMMUNOCHEMOTHERAPY)
     Route: 065

REACTIONS (5)
  - Listeria sepsis [Recovering/Resolving]
  - Cutaneous listeriosis [Recovering/Resolving]
  - Listeriosis [Recovering/Resolving]
  - Meningitis listeria [Recovered/Resolved]
  - Listeria encephalitis [Recovered/Resolved]
